FAERS Safety Report 8412748-2 (Version None)
Quarter: 2012Q2

REPORT INFORMATION
  Report Type: 
  Country: None (occurrence: None)
  Receive Date: 20120605
  Receipt Date: 20120523
  Transmission Date: 20120825
  Serious: No
  Sender: FDA-Public Use
  Company Number: US-AMGEN-USASP2012032461

PATIENT
  Age: 54 Year
  Sex: Female

DRUGS (3)
  1. LYRICA [Concomitant]
     Dosage: UNK
  2. CYMBALTA [Concomitant]
     Dosage: UNK
  3. ENBREL [Suspect]
     Indication: PSORIATIC ARTHROPATHY
     Dosage: 50 MG, QWK
     Dates: start: 20110511

REACTIONS (3)
  - DRY MOUTH [None]
  - FIBROMYALGIA [None]
  - WEIGHT INCREASED [None]
